FAERS Safety Report 5579067-3 (Version None)
Quarter: 2008Q1

REPORT INFORMATION
  Report Type: 
  Country: None (occurrence: None)
  Receive Date: 20080102
  Receipt Date: 20071218
  Transmission Date: 20080703
  Serious: Yes (Other)
  Sender: FDA-Public Use
  Company Number: FR-AMGEN-US257878

PATIENT
  Sex: Female

DRUGS (4)
  1. ENBREL [Suspect]
     Indication: RHEUMATOID ARTHRITIS
     Route: 058
     Dates: start: 20030501, end: 20070123
  2. OGAST [Concomitant]
     Dosage: UNKNOWN
  3. DI-ANTALVIC [Concomitant]
     Dosage: UNKNOWN
  4. TILCOTIL [Concomitant]
     Dosage: UNKNOWN

REACTIONS (5)
  - CONJUNCTIVITIS [None]
  - INTRAOCULAR PRESSURE INCREASED [None]
  - IRIS ADHESIONS [None]
  - SCLERITIS [None]
  - UVEITIS [None]
